FAERS Safety Report 20853578 (Version 1)
Quarter: 2022Q2

REPORT INFORMATION
  Report Type: Spontaneous
  Country: US (occurrence: None)
  Receive Date: 20220519
  Receipt Date: 20220519
  Transmission Date: 20220720
  Serious: No
  Sender: FDA-Public Use
  Company Number: None

PATIENT
  Age: 49 Year
  Sex: Female

DRUGS (2)
  1. TAFINLAR [Suspect]
     Active Substance: DABRAFENIB MESYLATE
     Dosage: FREQUENCY : TWICE A DAY;?
     Route: 048
     Dates: start: 202204
  2. MEKINIST TAB 2MG [Concomitant]
     Dates: start: 20220411

REACTIONS (4)
  - Nausea [None]
  - Vomiting [None]
  - Exposure via eye contact [None]
  - Ocular hyperaemia [None]

NARRATIVE: CASE EVENT DATE: 20220519
